FAERS Safety Report 11044584 (Version 2)
Quarter: 2015Q2

REPORT INFORMATION
  Report Type: Report from Study
  Country: KR (occurrence: KR)
  Receive Date: 20150417
  Receipt Date: 20150519
  Transmission Date: 20150821
  Serious: No
  Sender: FDA-Public Use
  Company Number: KR-DSJP-DSJ-2012-14668

PATIENT
  Age: 49 Year
  Sex: Male
  Weight: 80 kg

DRUGS (10)
  1. PRAVASTATIN SODIUM. [Concomitant]
     Active Substance: PRAVASTATIN SODIUM
     Indication: HYPERLIPIDAEMIA
     Dosage: NR
     Route: 048
     Dates: start: 20111121
  2. MESOCAN [Concomitant]
     Indication: BLOOD CHOLESTEROL
     Dosage: NR
     Route: 048
     Dates: start: 20111121
  3. KREMEZIN [Concomitant]
     Active Substance: ACTIVATED CHARCOAL
     Indication: AZOTAEMIA
     Dosage: NR
     Route: 048
     Dates: start: 20111121
  4. MEDIPIN [Concomitant]
     Indication: HYPERTENSION
     Dosage: NR
     Route: 048
     Dates: start: 20111121
  5. RENALMIN [Concomitant]
     Indication: VITAMIN SUPPLEMENTATION
     Dosage: NR
     Route: 048
     Dates: start: 20120930
  6. FERROBA-U [Concomitant]
     Indication: ANAEMIA PROPHYLAXIS
     Dosage: NR
     Route: 048
     Dates: start: 20111121
  7. CS-8663 [Suspect]
     Active Substance: AMLODIPINE BESYLATE\OLMESARTAN MEDOXOMIL
     Indication: HYPERTENSION
     Dosage: 10/40 MG, QD
     Route: 048
     Dates: start: 20120709
  8. DICHLOZID [Concomitant]
     Indication: HYPERTENSION
     Dosage: NR
     Route: 048
     Dates: start: 20111121
  9. FERROBA-U [Concomitant]
     Indication: DEFICIENCY ANAEMIA
  10. GLUCOBAY [Concomitant]
     Active Substance: ACARBOSE
     Indication: HYPERGLYCAEMIA
     Dosage: NR
     Route: 048
     Dates: start: 20111121

REACTIONS (1)
  - Anaemia [Recovered/Resolved]

NARRATIVE: CASE EVENT DATE: 20120709
